FAERS Safety Report 17822991 (Version 1)
Quarter: 2020Q2

REPORT INFORMATION
  Report Type: Spontaneous
  Country: US (occurrence: US)
  Receive Date: 20200522
  Receipt Date: 20200522
  Transmission Date: 20200714
  Serious: No
  Sender: FDA-Public Use
  Company Number: None

PATIENT

DRUGS (1)
  1. NURTEC ODT [Suspect]
     Active Substance: RIMEGEPANT SULFATE

REACTIONS (5)
  - Disorientation [None]
  - Dizziness [None]
  - Dysstasia [None]
  - Headache [None]
  - Migraine [None]

NARRATIVE: CASE EVENT DATE: 20200522
